FAERS Safety Report 6943082-5 (Version None)
Quarter: 2010Q3

REPORT INFORMATION
  Report Type: 
  Country: None (occurrence: None)
  Receive Date: 20100826
  Receipt Date: 20100816
  Transmission Date: 20110219
  Serious: Yes (Hospitalization)
  Sender: FDA-Public Use
  Company Number: GXBR2010US01424

PATIENT
  Sex: Female
  Weight: 73.923 kg

DRUGS (4)
  1. RIFAMPIN [Suspect]
     Indication: NASAL ULCER
     Dosage: UNK
     Dates: start: 20100701
  2. RIBAVIRIN CAPSULES (NGX) [Suspect]
     Indication: HEPATITIS C
     Dosage: UNK
     Route: 048
     Dates: start: 20100430
  3. BACTRIM DS [Suspect]
     Indication: NASAL ULCER
     Dosage: UNK
     Dates: start: 20100701
  4. PEG-INTRON [Suspect]
     Indication: HEPATITIS C
     Dosage: UNK
     Route: 058
     Dates: start: 20100430

REACTIONS (18)
  - AGITATION [None]
  - ANGER [None]
  - ASTHENIA [None]
  - BLOOD SODIUM DECREASED [None]
  - CONFUSIONAL STATE [None]
  - DEHYDRATION [None]
  - DIARRHOEA [None]
  - DYSGRAPHIA [None]
  - FATIGUE [None]
  - GASTROENTERITIS [None]
  - LOSS OF CONSCIOUSNESS [None]
  - MEMORY IMPAIRMENT [None]
  - MICTURITION DISORDER [None]
  - NASAL ULCER [None]
  - NAUSEA [None]
  - NERVOUSNESS [None]
  - ORAL FUNGAL INFECTION [None]
  - WEIGHT DECREASED [None]
